FAERS Safety Report 14010083 (Version 1)
Quarter: 2017Q3

REPORT INFORMATION
  Report Type: Spontaneous
  Country: TN (occurrence: TN)
  Receive Date: 20170926
  Receipt Date: 20170926
  Transmission Date: 20171128
  Serious: Yes (Other)
  Sender: FDA-Public Use
  Company Number: TN-ENDO PHARMACEUTICALS INC-2017-005031

PATIENT
  Age: 48 Year
  Sex: Male

DRUGS (6)
  1. CAPTOPRIL TABLETS [Suspect]
     Active Substance: CAPTOPRIL
     Indication: CARDIAC DISORDER
     Dosage: 150 MG, DAILY
     Route: 065
     Dates: start: 20160815, end: 20160923
  2. NIMODIPINE. [Concomitant]
     Active Substance: NIMODIPINE
     Indication: CARDIAC DISORDER
     Dosage: 360 MG, DAILY
     Route: 065
     Dates: start: 20170815
  3. CAPTOPRIL TABLETS [Suspect]
     Active Substance: CAPTOPRIL
     Indication: CEREBROVASCULAR ACCIDENT
  4. NIMODIPINE. [Concomitant]
     Active Substance: NIMODIPINE
     Indication: CEREBROVASCULAR ACCIDENT
  5. MOXONIDINE [Concomitant]
     Active Substance: MOXONIDINE
     Indication: CARDIAC DISORDER
     Dosage: 0.4 MG, DAILY
     Route: 065
     Dates: start: 20160815
  6. MOXONIDINE [Concomitant]
     Active Substance: MOXONIDINE
     Indication: CEREBROVASCULAR ACCIDENT

REACTIONS (2)
  - Off label use [Recovered/Resolved]
  - Drug reaction with eosinophilia and systemic symptoms [Recovered/Resolved]

NARRATIVE: CASE EVENT DATE: 20160815
